FAERS Safety Report 7224853-7 (Version None)
Quarter: 2011Q1

REPORT INFORMATION
  Report Type: 
  Country: None (occurrence: None)
  Receive Date: 20110113
  Receipt Date: 20110106
  Transmission Date: 20110831
  Serious: Yes (Death)
  Sender: FDA-Public Use
  Company Number: FR-KINGPHARMUSA00001-K201001491

PATIENT
  Age: 52 Year
  Sex: Male

DRUGS (2)
  1. ALTACE [Suspect]
     Dosage: 5 MG, UNK
     Route: 048
  2. HYDROCHLOROTHIAZIDE [Suspect]
     Dosage: 25 MG, UNK
     Route: 048

REACTIONS (1)
  - DEATH [None]
